FAERS Safety Report 5574654-0 (Version None)
Quarter: 2007Q4

REPORT INFORMATION
  Report Type: 
  Country: None (occurrence: None)
  Receive Date: 20071226
  Receipt Date: 20071226
  Transmission Date: 20080405
  Serious: Yes (Other)
  Sender: FDA-Public Use
  Company Number: None

PATIENT
  Age: 29 Year
  Sex: Female
  Weight: 54.4316 kg

DRUGS (1)
  1. AVELOX [Suspect]
     Indication: BRONCHITIS
     Dosage: 400 MG. -ONE TABLET- 1XDAY PO
     Route: 048
     Dates: start: 20071218, end: 20071221

REACTIONS (16)
  - AMNESIA [None]
  - ANXIETY [None]
  - CHILLS [None]
  - CONFUSIONAL STATE [None]
  - DYSPHEMIA [None]
  - FATIGUE [None]
  - HYPOAESTHESIA [None]
  - JOINT SWELLING [None]
  - MUSCLE SPASMS [None]
  - MUSCULAR WEAKNESS [None]
  - NAUSEA [None]
  - NEUROPATHY PERIPHERAL [None]
  - OEDEMA PERIPHERAL [None]
  - STRESS [None]
  - TREMOR [None]
  - VERTIGO [None]
